FAERS Safety Report 4390175-5 (Version None)
Quarter: 2004Q3

REPORT INFORMATION
  Report Type: 
  Country: None (occurrence: None)
  Receive Date: 20040706
  Receipt Date: 20040623
  Transmission Date: 20050211
  Serious: Yes (Hospitalization)
  Sender: FDA-Public Use
  Company Number: FR-GLAXOSMITHKLINE-B0336510A

PATIENT
  Age: 76 Year
  Sex: Female

DRUGS (9)
  1. DEROXAT [Suspect]
     Dosage: 20MG UNKNOWN
     Route: 048
  2. PREVISCAN [Suspect]
     Indication: ATRIAL FLUTTER
     Route: 048
     Dates: end: 20040302
  3. ACETAMINOPHEN [Concomitant]
     Indication: ARTHROPATHY
     Dosage: 2UNIT PER DAY
     Route: 048
  4. SPECIAFOLDINE [Concomitant]
     Dosage: 5MG PER DAY
     Route: 048
  5. LASILIX [Concomitant]
     Indication: PULMONARY HYPERTENSION
     Dosage: 40MG PER DAY
     Route: 048
  6. DIGOXIN [Concomitant]
     Indication: PULMONARY HYPERTENSION
     Dosage: .25MG PER DAY
     Route: 048
  7. TARDYFERON [Concomitant]
     Dosage: 160MG PER DAY
     Route: 048
  8. DIFFU K [Concomitant]
     Dosage: 4UNIT PER DAY
     Route: 048
  9. MOPRAL [Concomitant]
     Dosage: 20MG PER DAY
     Route: 048

REACTIONS (3)
  - DRUG INTERACTION [None]
  - IRON DEFICIENCY ANAEMIA [None]
  - PALLOR [None]
